FAERS Safety Report 11750341 (Version 1)
Quarter: 2015Q4

REPORT INFORMATION
  Report Type: Spontaneous
  Country: US (occurrence: None)
  Receive Date: 20151117
  Receipt Date: 20151117
  Transmission Date: 20160304
  Serious: Yes (Life-Threatening)
  Sender: FDA-Public Use
  Company Number: None

PATIENT
  Age: 37 Year
  Sex: Female
  Weight: 52.8 kg

DRUGS (1)
  1. PENTOSAN POLYSULFATE SODIUM [Suspect]
     Active Substance: PENTOSAN POLYSULFATE SODIUM
     Indication: CYSTITIS INTERSTITIAL
     Route: 048
     Dates: start: 20150220, end: 20150312

REACTIONS (11)
  - Diarrhoea [None]
  - Vomiting [None]
  - Hypotension [None]
  - Nausea [None]
  - Tachypnoea [None]
  - Tachycardia [None]
  - Abdominal tenderness [None]
  - Dehydration [None]
  - Colitis [None]
  - Abdominal pain [None]
  - Abdominal distension [None]

NARRATIVE: CASE EVENT DATE: 20150312
